FAERS Safety Report 8203927-8 (Version None)
Quarter: 2012Q1

REPORT INFORMATION
  Report Type: 
  Country: None (occurrence: None)
  Receive Date: 20120313
  Receipt Date: 20120305
  Transmission Date: 20120608
  Serious: Yes (Other)
  Sender: FDA-Public Use
  Company Number: US-BAYER-2011-078813

PATIENT
  Age: 27 Year
  Sex: Female
  Weight: 124.72 kg

DRUGS (5)
  1. LORTAB [Concomitant]
     Dosage: 7.5 MG, Q4HR
     Dates: start: 20060410
  2. MOTRIN [Concomitant]
     Dosage: AS NEEDED
     Dates: start: 20060410
  3. YASMIN [Suspect]
     Dosage: UNK
     Dates: start: 20050101, end: 20070101
  4. ANTIINFLAMMATORY/ANTIRHEUMATIC NON-STEROIDS [Concomitant]
  5. ZANAFLEX [Concomitant]
     Dosage: UNK
     Dates: start: 20060410

REACTIONS (2)
  - CHOLECYSTITIS CHRONIC [None]
  - CHOLECYSTECTOMY [None]
